FAERS Safety Report 9277307 (Version 1)
Quarter: 2013Q2

REPORT INFORMATION
  Report Type: Spontaneous
  Country: GB (occurrence: GB)
  Receive Date: 20130508
  Receipt Date: 20130508
  Transmission Date: 20140414
  Serious: Yes (Other)
  Sender: FDA-Public Use
  Company Number: GB-ACCORD-017451

PATIENT
  Sex: 0

DRUGS (2)
  1. GEMCITABINE [Suspect]
     Indication: CHEMOTHERAPY
  2. LUCENTIS [Interacting]
     Indication: MACULAR DEGENERATION

REACTIONS (2)
  - Drug interaction [Unknown]
  - Pancreatic carcinoma [Unknown]
